FAERS Safety Report 13664368 (Version 1)
Quarter: 2017Q2

REPORT INFORMATION
  Report Type: Spontaneous
  Country: US (occurrence: US)
  Receive Date: 20170619
  Receipt Date: 20170619
  Transmission Date: 20170830
  Serious: Yes (Other)
  Sender: FDA-Public Use
  Company Number: US-PFIZER INC-2017263351

PATIENT
  Age: 17 Month
  Sex: Female
  Weight: 10.87 kg

DRUGS (1)
  1. BICILLIN L-A [Suspect]
     Active Substance: PENICILLIN G BENZATHINE
     Indication: STREPTOCOCCAL INFECTION
     Dosage: 1.2 MILLION UNITS, 2 ML TOTAL
     Route: 030
     Dates: start: 20170503

REACTIONS (9)
  - Cough [Recovering/Resolving]
  - Sinusitis [Recovering/Resolving]
  - Respiratory tract infection [Recovered/Resolved with Sequelae]
  - Pyrexia [Recovered/Resolved]
  - Rhinorrhoea [Recovering/Resolving]
  - Nasal congestion [Recovering/Resolving]
  - Incorrect product storage [Unknown]
  - Drug administration error [Unknown]
  - Overdose [Unknown]

NARRATIVE: CASE EVENT DATE: 20170503
